FAERS Safety Report 5073751-6 (Version None)
Quarter: 2006Q3

REPORT INFORMATION
  Report Type: 
  Country: None (occurrence: None)
  Receive Date: 20060808
  Receipt Date: 20050422
  Transmission Date: 20061208
  Serious: No
  Sender: FDA-Public Use
  Company Number: US-AMGEN-KDL129350

PATIENT
  Age: 80 Year
  Sex: Male
  Weight: 90.8 kg

DRUGS (4)
  1. PROCRIT [Suspect]
     Indication: ANAEMIA
     Route: 058
     Dates: start: 20040101
  2. DIURETICS [Concomitant]
  3. VITAMIN B COMPLEX CAP [Concomitant]
  4. UNSPECIFIED MEDICATION [Concomitant]

REACTIONS (5)
  - CONDITION AGGRAVATED [None]
  - FATIGUE [None]
  - FEELING COLD [None]
  - GASTROINTESTINAL HAEMORRHAGE [None]
  - PALLOR [None]
